FAERS Safety Report 5061010-7 (Version None)
Quarter: 2006Q3

REPORT INFORMATION
  Report Type: 
  Country: None (occurrence: None)
  Receive Date: 20060720
  Receipt Date: 20060710
  Transmission Date: 20061208
  Serious: Yes (Other)
  Sender: FDA-Public Use
  Company Number: 2006077104

PATIENT

DRUGS (2)
  1. ATORVASTATIN CALCIUM [Suspect]
     Indication: DRUG USE FOR UNKNOWN INDICATION
     Dosage: ORAL
     Route: 048
  2. PLAVIX [Suspect]
     Indication: STENT PLACEMENT
     Dosage: 75 MG (75 MG, 1 IN 1 D), ORAL
     Route: 048

REACTIONS (3)
  - CORONARY ARTERY DISSECTION [None]
  - CORONARY ARTERY RESTENOSIS [None]
  - DRUG INTERACTION INHIBITION [None]
